FAERS Safety Report 7676175-8 (Version None)
Quarter: 2011Q3

REPORT INFORMATION
  Report Type: 
  Country: None (occurrence: None)
  Receive Date: 20110811
  Receipt Date: 20110802
  Transmission Date: 20111222
  Serious: Yes (Other)
  Sender: FDA-Public Use
  Company Number: DE-JNJFOC-20110801170

PATIENT
  Age: 37 Year
  Sex: Female

DRUGS (3)
  1. PALIPERIDONE [Suspect]
     Indication: PRODUCT USED FOR UNKNOWN INDICATION
     Route: 030
     Dates: start: 20110725
  2. UNKNOWN MEDICATION [Concomitant]
     Route: 048
  3. PALIPERIDONE [Suspect]
     Route: 030
     Dates: start: 20110601

REACTIONS (1)
  - LIVER FUNCTION TEST ABNORMAL [None]
